FAERS Safety Report 7568428-9 (Version None)
Quarter: 2011Q2

REPORT INFORMATION
  Report Type: 
  Country: None (occurrence: None)
  Receive Date: 20110623
  Receipt Date: 20110610
  Transmission Date: 20111010
  Serious: Yes (Other)
  Sender: FDA-Public Use
  Company Number: FR-ELI_LILLY_AND_COMPANY-FR201106003687

PATIENT
  Sex: Male
  Weight: 55 kg

DRUGS (3)
  1. RADIATION [Suspect]
     Indication: NON-SMALL CELL LUNG CANCER
     Dosage: UNK UNK, 2GY ON DAY1 FOR 5DAYS PER WEEK
     Dates: start: 20110609
  2. PEMETREXED [Suspect]
     Indication: NON-SMALL CELL LUNG CANCER
     Dosage: 500 MG/M2, DAY1 EVERY 21DAYS
     Route: 042
     Dates: start: 20110427
  3. CISPLATIN [Suspect]
     Indication: NON-SMALL CELL LUNG CANCER
     Dosage: 75 MG/M2, DAY1 EVERY 21DAYS
     Route: 042
     Dates: start: 20110427

REACTIONS (1)
  - PULMONARY EMBOLISM [None]
